FAERS Safety Report 16140403 (Version 1)
Quarter: 2019Q2

REPORT INFORMATION
  Report Type: Spontaneous
  Country: US (occurrence: US)
  Receive Date: 20190401
  Receipt Date: 20190401
  Transmission Date: 20190711
  Serious: No
  Sender: FDA-Public Use
  Company Number: US-SEPTODONT-201804521

PATIENT
  Sex: Female

DRUGS (1)
  1. LIDOCAINE HCL2%+EPI 1:100 [Suspect]
     Active Substance: LIDOCAINE HYDROCHLORIDE
     Indication: DENTAL LOCAL ANAESTHESIA

REACTIONS (1)
  - Drug ineffective [Recovered/Resolved]
